FAERS Safety Report 11507305 (Version 1)
Quarter: 2015Q3

REPORT INFORMATION
  Report Type: Spontaneous
  Country: US (occurrence: None)
  Receive Date: 20150914
  Receipt Date: 20150914
  Transmission Date: 20151125
  Serious: Yes (Hospitalization, Other)
  Sender: FDA-Public Use
  Company Number: None

PATIENT
  Age: 73 Year
  Sex: Female
  Weight: 85 kg

DRUGS (23)
  1. LISINOPRIL 5 MG [Suspect]
     Active Substance: LISINOPRIL
     Indication: HYPERTENSION
     Dosage: 1 PILL
     Route: 048
  2. DUO-NEBS [Concomitant]
  3. HYDROCORTISONE. [Concomitant]
     Active Substance: HYDROCORTISONE
  4. OXYCODONE [Concomitant]
     Active Substance: OXYCODONE
  5. FUROSEMID [Concomitant]
     Active Substance: FUROSEMIDE
  6. ACETAMINOPHEN. [Concomitant]
     Active Substance: ACETAMINOPHEN
  7. CALCIUM GLUCONATE. [Concomitant]
     Active Substance: CALCIUM GLUCONATE
  8. LATANOPROST. [Concomitant]
     Active Substance: LATANOPROST
  9. NS [Concomitant]
     Active Substance: SODIUM CHLORIDE
  10. PANTOPRAZOLE [Concomitant]
     Active Substance: PANTOPRAZOLE SODIUM
  11. TIOTROPIUM BROMIDE [Concomitant]
     Active Substance: TIOTROPIUM BROMIDE
  12. ADVAIR HFA [Concomitant]
     Active Substance: FLUTICASONE PROPIONATE\SALMETEROL XINAFOATE
  13. ONDANSETRON [Concomitant]
     Active Substance: ONDANSETRON
  14. METOLAZONE. [Concomitant]
     Active Substance: METOLAZONE
  15. CALCIUM CHLORIDE. [Concomitant]
     Active Substance: CALCIUM CHLORIDE
  16. CEFTRIAXONE. [Concomitant]
     Active Substance: CEFTRIAXONE
  17. HEPARIN SODIUM. [Concomitant]
     Active Substance: HEPARIN SODIUM
  18. FUROSEMIDE 40 MG [Suspect]
     Active Substance: FUROSEMIDE
     Indication: HYPERTENSION
     Dosage: 1 PILL
     Route: 048
  19. KAYEXELATE [Concomitant]
  20. VITAMIN B12 [Concomitant]
     Active Substance: CYANOCOBALAMIN
  21. BUMETANIDE. [Concomitant]
     Active Substance: BUMETANIDE
  22. OXYMETAZOLINE [Concomitant]
     Active Substance: OXYMETAZOLINE
  23. SERTRALINE [Concomitant]
     Active Substance: SERTRALINE HYDROCHLORIDE

REACTIONS (2)
  - Hypovolaemia [None]
  - Acute kidney injury [None]

NARRATIVE: CASE EVENT DATE: 20150904
